FAERS Safety Report 5545797-2 (Version None)
Quarter: 2007Q4

REPORT INFORMATION
  Report Type: 
  Country: None (occurrence: None)
  Receive Date: 20071207
  Receipt Date: 20071204
  Transmission Date: 20080405
  Serious: Yes (Death, Hospitalization)
  Sender: FDA-Public Use
  Company Number: 2007SP019877

PATIENT
  Age: 43 Year
  Sex: Male
  Weight: 84.5 kg

DRUGS (10)
  1. TEMOZOLOMIDE [Suspect]
     Indication: GLIOBLASTOMA MULTIFORME
     Dosage: 250 MG;QD;PO
     Route: 048
     Dates: start: 20070918, end: 20070922
  2. DOXORUBICIN HCL [Suspect]
     Indication: GLIOBLASTOMA MULTIFORME
     Dosage: 59 MG; IV
     Route: 042
     Dates: start: 20070918, end: 20070918
  3. NATRILIX /00340101/ [Concomitant]
  4. ASPIRIN /0002701/ [Concomitant]
  5. COVERSYL /00790701/ [Concomitant]
  6. AROPAX [Concomitant]
  7. MAGMIN [Concomitant]
  8. SLOW-K [Concomitant]
  9. LORAZEPAM [Concomitant]
  10. DEXAMETHASONE TAB [Concomitant]

REACTIONS (7)
  - ASPERGILLOSIS [None]
  - CANDIDIASIS [None]
  - FUNGAL SEPSIS [None]
  - IMMUNOSUPPRESSION [None]
  - LUNG ABSCESS [None]
  - SOMNOLENCE [None]
  - TUBERCULOSIS [None]
